FAERS Safety Report 4579854-4 (Version None)
Quarter: 2005Q1

REPORT INFORMATION
  Report Type: 
  Country: None (occurrence: None)
  Receive Date: 20050210
  Receipt Date: 20050126
  Transmission Date: 20050727
  Serious: Yes (Death)
  Sender: FDA-Public Use
  Company Number: 2004AL000690

PATIENT
  Age: 55 Year
  Sex: Male

DRUGS (8)
  1. TRAMADOL HCL [Suspect]
     Dosage: PO
     Route: 048
  2. AMITRIPTLINE HYDROCHLORIDE TAB [Suspect]
     Dosage: PO
     Route: 048
  3. METOPROLOL TARTRATE [Suspect]
     Dosage: PO
     Route: 048
  4. DIGOXIN [Concomitant]
  5. FUROSEMIDE [Concomitant]
  6. LISINOPRIL [Concomitant]
  7. ISOSORBIDE [Concomitant]
  8. ALPRAZOLAM [Concomitant]

REACTIONS (11)
  - BLOOD CREATINE PHOSPHOKINASE INCREASED [None]
  - BLOOD PRESSURE SYSTOLIC DECREASED [None]
  - BRADYCARDIA [None]
  - DELIRIUM [None]
  - ELECTROCARDIOGRAM QRS COMPLEX PROLONGED [None]
  - ELECTROMECHANICAL DISSOCIATION [None]
  - HYPOTENSION [None]
  - MEDICATION ERROR [None]
  - MULTIPLE DRUG OVERDOSE ACCIDENTAL [None]
  - TORSADE DE POINTES [None]
  - VENTRICULAR TACHYCARDIA [None]
